FAERS Safety Report 5690086-9 (Version None)
Quarter: 2008Q1

REPORT INFORMATION
  Report Type: 
  Country: None (occurrence: None)
  Receive Date: 20080331
  Receipt Date: 20080331
  Transmission Date: 20080703
  Serious: No
  Sender: FDA-Public Use
  Company Number: None

PATIENT
  Age: 49 Year
  Sex: Male
  Weight: 79.3795 kg

DRUGS (1)
  1. CIPROFLOXACIN [Suspect]
     Indication: PROSTATITIS
     Dosage: ONE TWICE DAILY PO
     Route: 048
     Dates: start: 20080229, end: 20080330

REACTIONS (4)
  - MALAISE [None]
  - PROSTATITIS [None]
  - SKIN WRINKLING [None]
  - TINNITUS [None]
